FAERS Safety Report 6501162-2 (Version None)
Quarter: 2009Q4

REPORT INFORMATION
  Report Type: 
  Country: None (occurrence: None)
  Receive Date: 20091216
  Receipt Date: 20090824
  Transmission Date: 20100525
  Serious: No
  Sender: FDA-Public Use
  Company Number: A0803732A

PATIENT
  Age: 23 Year
  Sex: Female

DRUGS (1)
  1. NICOTINE POLACRILEX [Suspect]
     Indication: SMOKING CESSATION THERAPY

REACTIONS (2)
  - DRUG ADMINISTRATION ERROR [None]
  - NICOTINE DEPENDENCE [None]
